FAERS Safety Report 8492955 (Version 2)
Quarter: 2012Q4

REPORT INFORMATION
  Report Type: 
  Country: GB (occurrence: GB)
  Receive Date: 20120404
  Receipt Date: 20120918
  Transmission Date: 20130627
  Serious: Yes (Hospitalization, Congenital Anomaly)
  Sender: FDA-Public Use
  Company Number: GB-JNJFOC-20120312946

PATIENT

DRUGS (2)
  1. NICOTINE [Suspect]
     Route: 064
  2. NICOTINE [Suspect]
     Indication: FOETAL EXPOSURE DURING PREGNANCY
     Route: 064

REACTIONS (10)
  - Foetal exposure during pregnancy [Unknown]
  - Premature baby [Unknown]
  - Low birth weight baby [Unknown]
  - Apgar score low [Unknown]
  - Blood pH decreased [Unknown]
  - Intraventricular haemorrhage [Unknown]
  - Convulsion neonatal [Unknown]
  - Congenital anomaly [Unknown]
  - Necrotising colitis [Unknown]
  - Mechanical ventilation [Unknown]
